FAERS Safety Report 5806745-0 (Version None)
Quarter: 2008Q3

REPORT INFORMATION
  Report Type: 
  Country: None (occurrence: None)
  Receive Date: 20080709
  Receipt Date: 20080709
  Transmission Date: 20090109
  Serious: Yes (Hospitalization)
  Sender: FDA-Public Use
  Company Number: None

PATIENT
  Sex: Female
  Weight: 98.9 kg

DRUGS (2)
  1. CISPLATIN [Suspect]
     Dosage: 127.8 MG
  2. ETOPOSIDE [Suspect]
     Dosage: 255.6 MG

REACTIONS (2)
  - ANAEMIA [None]
  - THROMBOCYTOPENIA [None]
